FAERS Safety Report 13170301 (Version 2)
Quarter: 2017Q1

REPORT INFORMATION
  Report Type: Report from Study
  Country: HU (occurrence: HU)
  Receive Date: 20170131
  Receipt Date: 20170204
  Transmission Date: 20170428
  Serious: Yes (Hospitalization)
  Sender: FDA-Public Use
  Company Number: PHHY2017HU012816

PATIENT
  Age: 84 Year
  Sex: Female

DRUGS (1)
  1. AFINITOR [Suspect]
     Active Substance: EVEROLIMUS
     Indication: PRODUCT USED FOR UNKNOWN INDICATION
     Route: 065

REACTIONS (14)
  - Chest pain [Unknown]
  - Dyspnoea [Unknown]
  - Red blood cell count decreased [Unknown]
  - International normalised ratio increased [Unknown]
  - Mean platelet volume decreased [Unknown]
  - Blood sodium decreased [Unknown]
  - Hydrothorax [Unknown]
  - Arteriosclerosis [Unknown]
  - C-reactive protein increased [Unknown]
  - Mean cell haemoglobin concentration increased [Unknown]
  - Palpitations [Unknown]
  - Glomerular filtration rate decreased [Unknown]
  - Prothrombin time prolonged [Unknown]
  - Lymphocyte count decreased [Unknown]

NARRATIVE: CASE EVENT DATE: 20170121
